FAERS Safety Report 4439077-6 (Version None)
Quarter: 2004Q3

REPORT INFORMATION
  Report Type: 
  Country: None (occurrence: None)
  Receive Date: 20040901
  Receipt Date: 20040819
  Transmission Date: 20050211
  Serious: Yes (Hospitalization)
  Sender: FDA-Public Use
  Company Number: SE-GLAXOSMITHKLINE-B0343879A

PATIENT
  Age: 39 Year
  Sex: Male

DRUGS (3)
  1. COMBIVIR [Suspect]
     Indication: PNEUMOCYSTIS CARINII INFECTION
     Route: 048
     Dates: start: 20031001
  2. VIDEX [Suspect]
     Indication: PNEUMOCYSTIS CARINII INFECTION
     Route: 048
     Dates: start: 20031001
  3. KALETRA [Suspect]
     Indication: PNEUMOCYSTIS CARINII INFECTION
     Route: 048
     Dates: start: 20031001

REACTIONS (5)
  - DEEP VEIN THROMBOSIS [None]
  - HAEMANGIOMA [None]
  - OEDEMA PERIPHERAL [None]
  - PAIN [None]
  - PHLEBOTHROMBOSIS [None]
